FAERS Safety Report 23679975 (Version 4)
Quarter: 2024Q3

REPORT INFORMATION
  Report Type: Report from Study
  Country: GB (occurrence: GB)
  Receive Date: 20240327
  Receipt Date: 20240813
  Transmission Date: 20241017
  Serious: No
  Sender: SANDOZ
  Company Number: GB-SANDOZ-SDZ2024GB031617

PATIENT
  Age: 41 Year
  Sex: Male

DRUGS (1)
  1. HYRIMOZ [Suspect]
     Active Substance: ADALIMUMAB-ADAZ
     Indication: Crohn^s disease
     Dosage: 40 MG
     Route: 058

REACTIONS (4)
  - Illness [Unknown]
  - Drug ineffective [Unknown]
  - Drug dose omission by device [Unknown]
  - Needle issue [Unknown]

NARRATIVE: CASE EVENT DATE: 20240319
